FAERS Safety Report 5694706-4 (Version None)
Quarter: 2008Q2

REPORT INFORMATION
  Report Type: 
  Country: None (occurrence: None)
  Receive Date: 20080404
  Receipt Date: 20080402
  Transmission Date: 20081010
  Serious: Yes (Other)
  Sender: FDA-Public Use
  Company Number: B0510775A

PATIENT
  Age: 81 Year
  Sex: Female
  Weight: 37 kg

DRUGS (13)
  1. PAXIL [Suspect]
     Indication: DEPRESSION
     Dosage: 10MG PER DAY
     Route: 048
     Dates: start: 20071119
  2. FIRSTCIN [Suspect]
     Indication: INFECTION
     Dosage: 1G TWICE PER DAY
     Route: 042
     Dates: start: 20080207, end: 20080212
  3. ENTERONON-R [Concomitant]
     Dosage: 3MG PER DAY
     Route: 048
     Dates: start: 20080104, end: 20080228
  4. TAKEPRON [Concomitant]
     Indication: GASTRIC ULCER
     Dosage: 30MG PER DAY
     Route: 048
     Dates: start: 20071109
  5. MAGNESIUM OXIDE [Concomitant]
     Indication: CONSTIPATION
     Route: 048
     Dates: start: 20071102
  6. TPN [Concomitant]
     Indication: ENTERAL NUTRITION
     Route: 065
     Dates: start: 20080222
  7. ACTOS [Concomitant]
     Dosage: 15MG PER DAY
     Route: 048
     Dates: start: 20071204, end: 20080214
  8. CHINESE MEDICINE [Concomitant]
     Indication: GASTROINTESTINAL DISORDER
     Dosage: 5G PER DAY
     Route: 048
     Dates: start: 20080111, end: 20080219
  9. UNKNOWN [Concomitant]
     Indication: NUTRITIONAL SUPPORT
     Route: 042
     Dates: start: 20080123, end: 20080222
  10. UNKNOWN [Concomitant]
     Route: 042
     Dates: start: 20080123, end: 20080222
  11. INTRALIPID 10% [Concomitant]
     Indication: NUTRITIONAL SUPPORT
     Route: 042
     Dates: start: 20080123, end: 20080207
  12. LACTEC [Concomitant]
     Dosage: 1000ML PER DAY
     Route: 042
     Dates: start: 20080208, end: 20080213
  13. UNKNOWN [Concomitant]
     Indication: INFECTION
     Dosage: 2G PER DAY
     Route: 042
     Dates: start: 20080204, end: 20080206

REACTIONS (11)
  - ASPARTATE AMINOTRANSFERASE INCREASED [None]
  - BLOOD BILIRUBIN INCREASED [None]
  - BLOOD CREATININE DECREASED [None]
  - BLOOD LACTATE DEHYDROGENASE INCREASED [None]
  - BLOOD UREA DECREASED [None]
  - CHROMATURIA [None]
  - HAEMATOCRIT DECREASED [None]
  - HAEMOGLOBIN DECREASED [None]
  - PLATELET COUNT INCREASED [None]
  - RED BLOOD CELL COUNT DECREASED [None]
  - WHITE BLOOD CELL COUNT INCREASED [None]
